FAERS Safety Report 6279825-6 (Version None)
Quarter: 2009Q3

REPORT INFORMATION
  Report Type: 
  Country: None (occurrence: None)
  Receive Date: 20090723
  Receipt Date: 20090710
  Transmission Date: 20100115
  Serious: Yes (Hospitalization)
  Sender: FDA-Public Use
  Company Number: PHHY2008MX33378

PATIENT
  Sex: Female

DRUGS (2)
  1. ZELMAC [Suspect]
     Indication: IRRITABLE BOWEL SYNDROME
     Dosage: 12 MG, QD
     Route: 048
     Dates: start: 20070601
  2. ZELMAC [Suspect]
     Dosage: 6 MG, PRN
     Route: 048
     Dates: start: 20071001

REACTIONS (2)
  - BILE DUCT STONE [None]
  - CHOLECYSTECTOMY [None]
